FAERS Safety Report 9363219 (Version 1)
Quarter: 2013Q2

REPORT INFORMATION
  Report Type: Spontaneous
  Country: US (occurrence: None)
  Receive Date: 20130621
  Receipt Date: 20130621
  Transmission Date: 20140414
  Serious: Yes (Hospitalization)
  Sender: FDA-Public Use
  Company Number: None

PATIENT
  Age: 17 Year
  Sex: Male

DRUGS (1)
  1. CONCERTA [Suspect]
     Indication: ATTENTION DEFICIT/HYPERACTIVITY DISORDER
     Dosage: 2 PILLS IN AM BEGAN APPROX 1 WEEK PRIOR TO 3/7
     Route: 048

REACTIONS (8)
  - Dizziness [None]
  - Vision blurred [None]
  - Choreoathetosis [None]
  - Nausea [None]
  - Speech disorder [None]
  - Poor quality sleep [None]
  - Headache [None]
  - Psychogenic movement disorder [None]
